FAERS Safety Report 7288968-X (Version None)
Quarter: 2011Q1

REPORT INFORMATION
  Report Type: 
  Country: None (occurrence: None)
  Receive Date: 20110211
  Receipt Date: 20110202
  Transmission Date: 20110831
  Serious: Yes (Other)
  Sender: FDA-Public Use
  Company Number: CA-JNJFOC-20110201439

PATIENT
  Sex: Female
  Weight: 63.2 kg

DRUGS (4)
  1. REMICADE [Suspect]
     Indication: CROHN'S DISEASE
     Route: 042
  2. BENADRYL [Concomitant]
     Indication: PREMEDICATION
     Route: 048
  3. TYLENOL-500 [Concomitant]
  4. PREDNISONE TAB [Concomitant]
     Indication: PREMEDICATION
     Route: 048

REACTIONS (5)
  - PYREXIA [None]
  - BURNING SENSATION [None]
  - SWELLING FACE [None]
  - ARTHRALGIA [None]
  - SKIN EXFOLIATION [None]
